FAERS Safety Report 7746582-3 (Version None)
Quarter: 2011Q3

REPORT INFORMATION
  Report Type: 
  Country: None (occurrence: None)
  Receive Date: 20110913
  Receipt Date: 20110901
  Transmission Date: 20111222
  Serious: Yes (Other)
  Sender: FDA-Public Use
  Company Number: US-BAYER-2011-019844

PATIENT
  Age: 17 Year
  Sex: Female
  Weight: 75 kg

DRUGS (4)
  1. DROSPIRENONE AND ETHINYL ESTRADIOL [Suspect]
     Indication: ACNE
     Dosage: UNK
     Dates: start: 20070101, end: 20100101
  2. FLUOXETINE [Concomitant]
     Dosage: UNK
     Dates: start: 20070101
  3. YASMIN [Suspect]
     Indication: ACNE
     Dosage: UNK
     Dates: start: 20070101, end: 20100101
  4. YAZ [Suspect]
     Indication: ACNE
     Dosage: UNK
     Dates: start: 20070101, end: 20100101

REACTIONS (4)
  - INJURY [None]
  - PAIN [None]
  - CHOLECYSTITIS [None]
  - CHOLELITHIASIS [None]
